FAERS Safety Report 15069364 (Version 5)
Quarter: 2019Q2

REPORT INFORMATION
  Report Type: Report from Study
  Country: US (occurrence: US)
  Receive Date: 20180626
  Receipt Date: 20190510
  Transmission Date: 20190711
  Serious: Yes (Hospitalization)
  Sender: FDA-Public Use
  Company Number: US-ACTELION-A-NJ2018-174323

PATIENT
  Sex: Female
  Weight: 87.08 kg

DRUGS (5)
  1. MELOXICAM. [Suspect]
     Active Substance: MELOXICAM
     Indication: PAIN
     Route: 065
  2. MELOXICAM. [Suspect]
     Active Substance: MELOXICAM
     Indication: INFLAMMATION
  3. TRACLEER [Suspect]
     Active Substance: BOSENTAN
     Indication: PULMONARY HYPERTENSION
     Dosage: 125 MG, BID
     Route: 048
  4. COUMADIN [Concomitant]
     Active Substance: WARFARIN SODIUM
  5. TYVASO [Concomitant]
     Active Substance: TREPROSTINIL

REACTIONS (13)
  - Arteriosclerosis [Unknown]
  - Product dose omission [Unknown]
  - Haemorrhage [Recovering/Resolving]
  - International normalised ratio increased [Unknown]
  - Pericardial effusion [Unknown]
  - Scleroderma [Unknown]
  - Swelling [Unknown]
  - Rheumatoid arthritis [Unknown]
  - Pain [Unknown]
  - Transfusion [Unknown]
  - Colonoscopy [Unknown]
  - Epistaxis [Unknown]
  - Inflammation [Unknown]
